FAERS Safety Report 11925531 (Version 3)
Quarter: 2016Q1

REPORT INFORMATION
  Report Type: Spontaneous
  Country: FR (occurrence: FR)
  Receive Date: 20160118
  Receipt Date: 20160204
  Transmission Date: 20160526
  Serious: Yes (Hospitalization)
  Sender: FDA-Public Use
  Company Number: FR-009507513-1601FRA003474

PATIENT
  Age: 0 Day
  Sex: Male
  Weight: 1.37 kg

DRUGS (13)
  1. MORPHINE HYDROCHLORIDE [Suspect]
     Active Substance: MORPHINE HYDROCHLORIDE
     Dosage: UNK
     Route: 042
     Dates: start: 20150916, end: 20150918
  2. CUROSURF [Suspect]
     Active Substance: PORACTANT ALFA
     Dosage: 120 MG, SINGLE DOSE, SECOND ADMINISTRATION
     Route: 039
     Dates: start: 20150918, end: 20150918
  3. PARACETAMOL [Suspect]
     Active Substance: ACETAMINOPHEN
     Dosage: UNK
     Route: 042
     Dates: start: 20150916
  4. LASILIX [Suspect]
     Active Substance: FUROSEMIDE
     Dosage: 0.66 MG, TWICE DAILY
     Route: 042
     Dates: start: 20150917, end: 20150918
  5. CLAMOXYL [Suspect]
     Active Substance: AMOXICILLIN\CLAVULANIC ACID
     Dosage: 66 MG, TWICE DAILY
     Route: 042
     Dates: start: 20150917, end: 20150919
  6. CELESTENE CHRONODOSE [Suspect]
     Active Substance: BETAMETHASONE
     Route: 064
  7. SUFENTA [Suspect]
     Active Substance: SUFENTANIL CITRATE
     Route: 064
  8. CEFOTAXIME SODIUM [Suspect]
     Active Substance: CEFOTAXIME SODIUM
     Dosage: 64 MG, TWICE DAILY
     Route: 042
     Dates: start: 20150916, end: 20150916
  9. XYLOCAINE [Suspect]
     Active Substance: LIDOCAINE HYDROCHLORIDE
     Route: 064
  10. AMIKACINE [Suspect]
     Active Substance: AMIKACIN
     Dosage: 23.8 MG, SINGLE DOSE, SECOND ADMINISTRATION
     Route: 042
     Dates: start: 20150919, end: 20150919
  11. CAFFEINE. [Suspect]
     Active Substance: CAFFEINE
     Dosage: UNK
     Route: 042
     Dates: start: 20150917
  12. ZYPREXA [Suspect]
     Active Substance: OLANZAPINE
     Dosage: UNK
     Route: 064
  13. ROPIVACAINE HYDROCHLORIDE. [Suspect]
     Active Substance: ROPIVACAINE HYDROCHLORIDE
     Route: 064

REACTIONS (1)
  - Neonatal intestinal perforation [Recovered/Resolved with Sequelae]

NARRATIVE: CASE EVENT DATE: 20150919
